FAERS Safety Report 6340244-5 (Version None)
Quarter: 2009Q3

REPORT INFORMATION
  Report Type: 
  Country: None (occurrence: None)
  Receive Date: 20090902
  Receipt Date: 20081018
  Transmission Date: 20100115
  Serious: Yes (Hospitalization)
  Sender: FDA-Public Use
  Company Number: 001607

PATIENT
  Age: 53 Year
  Sex: Female

DRUGS (1)
  1. CO-CODAMOL (CO-CODAMOL) [Suspect]
     Dosage: ACETAMINOPHEN 500 MG/CODEINE 30 MG

REACTIONS (7)
  - ALTERED STATE OF CONSCIOUSNESS [None]
  - DERMATITIS BULLOUS [None]
  - HYPOVENTILATION [None]
  - MIOSIS [None]
  - RESPIRATORY FAILURE [None]
  - SELF-MEDICATION [None]
  - THERAPEUTIC AGENT TOXICITY [None]
